FAERS Safety Report 12277202 (Version 2)
Quarter: 2016Q3

REPORT INFORMATION
  Report Type: Spontaneous
  Country: US (occurrence: US)
  Receive Date: 20160418
  Receipt Date: 20160708
  Transmission Date: 20161109
  Serious: No
  Sender: FDA-Public Use
  Company Number: US-TEVA-635795USA

PATIENT
  Age: 46 Year
  Sex: Female

DRUGS (1)
  1. ZECUITY [Suspect]
     Active Substance: SUMATRIPTAN SUCCINATE
     Indication: MIGRAINE
     Dosage: 6.5 MG / 4 HOURS
     Route: 062
     Dates: start: 20160212

REACTIONS (3)
  - Paraesthesia [Unknown]
  - Application site irritation [Unknown]
  - Application site erythema [Unknown]

NARRATIVE: CASE EVENT DATE: 20160212
